FAERS Safety Report 10680654 (Version 2)
Quarter: 2015Q4

REPORT INFORMATION
  Report Type: Spontaneous
  Country: US (occurrence: US)
  Receive Date: 20141229
  Receipt Date: 20151228
  Transmission Date: 20160304
  Serious: Yes (Death, Hospitalization)
  Sender: FDA-Public Use
  Company Number: US-SA-2014SA118774

PATIENT
  Age: 53 Year
  Sex: Male

DRUGS (6)
  1. PLAVIX [Suspect]
     Active Substance: CLOPIDOGREL BISULFATE
     Dosage: DOSE- 1 A DAY
     Route: 048
     Dates: start: 1999, end: 20070807
  2. NITROPRUSSIDE [Concomitant]
     Active Substance: NITROPRUSSIDE
  3. COUMADIN [Concomitant]
     Active Substance: WARFARIN SODIUM
  4. ZETIA [Concomitant]
     Active Substance: EZETIMIBE
  5. MANNITOL. [Concomitant]
     Active Substance: MANNITOL
  6. ASPIRIN. [Concomitant]
     Active Substance: ASPIRIN

REACTIONS (1)
  - Cerebral haemorrhage [Fatal]

NARRATIVE: CASE EVENT DATE: 20070807
